FAERS Safety Report 4520961-X (Version None)
Quarter: 2004Q4

REPORT INFORMATION
  Report Type: 
  Country: None (occurrence: None)
  Receive Date: 20041206
  Receipt Date: 20041206
  Transmission Date: 20050328
  Serious: Yes (Hospitalization)
  Sender: FDA-Public Use
  Company Number: None

PATIENT
  Sex: Male
  Weight: 68.8 kg

DRUGS (3)
  1. CISPLATIN [Suspect]
     Indication: HYPOPHARYNGEAL CANCER
     Dosage: 100MG/M2  D18D22, INTRAVENOUS
     Route: 042
     Dates: start: 20041122, end: 20041122
  2. CISPLATIN [Suspect]
     Indication: SQUAMOUS CELL CARCINOMA
     Dosage: 100MG/M2  D18D22, INTRAVENOUS
     Route: 042
     Dates: start: 20041122, end: 20041122
  3. DAILY RADIATION OF 2.0GY [Concomitant]

REACTIONS (2)
  - BLOOD CREATININE INCREASED [None]
  - HAEMOGLOBIN DECREASED [None]
